FAERS Safety Report 23307909 (Version 10)
Quarter: 2025Q4

REPORT INFORMATION
  Report Type: Spontaneous
  Country: US (occurrence: US)
  Receive Date: 20231218
  Receipt Date: 20251027
  Transmission Date: 20260117
  Serious: Yes (Hospitalization, Other)
  Sender: PFIZER
  Company Number: US-PFIZER INC-2019365290

PATIENT
  Age: 65 Year
  Sex: Female
  Weight: 79 kg

DRUGS (10)
  1. INLYTA [Suspect]
     Active Substance: AXITINIB
     Indication: Paraganglion neoplasm
     Dosage: 5 MG, 2X/DAY
     Route: 048
     Dates: start: 20140116
  2. INLYTA [Suspect]
     Active Substance: AXITINIB
     Dosage: 3 MG, 2X/DAY
     Route: 048
  3. INLYTA [Suspect]
     Active Substance: AXITINIB
     Dosage: 2 MG, 2X/DAY
     Route: 048
     Dates: end: 20190719
  4. INLYTA [Suspect]
     Active Substance: AXITINIB
     Dosage: 2 MG, 2X/DAY
     Route: 048
     Dates: start: 20190726, end: 20190926
  5. INLYTA [Suspect]
     Active Substance: AXITINIB
     Dosage: 2 MG, 2X/DAY
     Route: 048
     Dates: start: 20190930, end: 20230705
  6. INLYTA [Suspect]
     Active Substance: AXITINIB
     Dosage: TAKE 2 TABLETS (2 MG TOTAL) BY MOUTH TWICE DAILY SWALLOW WHOLE WITH WATER
     Route: 048
     Dates: end: 20231218
  7. INLYTA [Suspect]
     Active Substance: AXITINIB
     Dosage: 2 MG, 2X/DAY
     Route: 048
     Dates: start: 20231229
  8. INLYTA [Suspect]
     Active Substance: AXITINIB
     Dosage: UNK
     Dates: end: 20250130
  9. INLYTA [Suspect]
     Active Substance: AXITINIB
     Dosage: 1 MG
  10. LIPITOR [Concomitant]
     Active Substance: ATORVASTATIN CALCIUM
     Dosage: TAKE 40 MG BY MOUTH
     Route: 048

REACTIONS (11)
  - Endodontic procedure [Unknown]
  - Genital labial operation [Unknown]
  - Migraine [Unknown]
  - Diarrhoea [Unknown]
  - Stomatitis [Unknown]
  - Mucosal inflammation [Unknown]
  - Skin toxicity [Unknown]
  - Memory impairment [Unknown]
  - Influenza [Unknown]
  - Chronic obstructive pulmonary disease [Unknown]
  - Off label use [Unknown]

NARRATIVE: CASE EVENT DATE: 20170401
